FAERS Safety Report 9916496 (Version 1)
Quarter: 2014Q1

REPORT INFORMATION
  Report Type: Report from Study
  Country: AU (occurrence: AU)
  Receive Date: 20140221
  Receipt Date: 20140221
  Transmission Date: 20141002
  Serious: Yes (Hospitalization)
  Sender: FDA-Public Use
  Company Number: AU-SA-2014SA017881

PATIENT
  Age: 74 Year
  Sex: Male

DRUGS (8)
  1. LANTUS [Suspect]
     Indication: PRODUCT USED FOR UNKNOWN INDICATION
     Dosage: 15 UNITS MORNING AND 15 UNITS EVENING DOSE:15 UNIT(S)
     Route: 058
     Dates: start: 20131210
  2. NEXIUM [Concomitant]
     Indication: ABDOMINAL PAIN UPPER
  3. LIPITOR [Concomitant]
  4. WARFARIN [Concomitant]
  5. MICARDIS [Concomitant]
  6. DIABEX [Concomitant]
  7. ENDEP [Concomitant]
  8. PROGOUT [Concomitant]

REACTIONS (2)
  - Cellulitis [Recovering/Resolving]
  - Drug administration error [Unknown]
